FAERS Safety Report 6311545-1 (Version None)
Quarter: 2009Q3

REPORT INFORMATION
  Report Type: 
  Country: None (occurrence: None)
  Receive Date: 20090817
  Receipt Date: 20090805
  Transmission Date: 20100115
  Serious: Yes (Other)
  Sender: FDA-Public Use
  Company Number: US-PFIZER INC-2009252525

PATIENT
  Sex: Female
  Weight: 43.091 kg

DRUGS (2)
  1. XALATAN [Suspect]
     Indication: INTRAOCULAR PRESSURE INCREASED
     Dosage: 1 GTT, 1X/DAY
     Route: 047
     Dates: start: 20090803, end: 20090804
  2. VITAMINS [Concomitant]
     Dosage: UNK

REACTIONS (2)
  - CHEST PAIN [None]
  - PALPITATIONS [None]
